FAERS Safety Report 13354135 (Version 2)
Quarter: 2017Q1

REPORT INFORMATION
  Report Type: Spontaneous
  Country: FR (occurrence: FR)
  Receive Date: 20170321
  Receipt Date: 20170329
  Transmission Date: 20170429
  Serious: Yes (Other)
  Sender: FDA-Public Use
  Company Number: FR-009507513-1703FRA007921

PATIENT
  Age: 36 Year
  Sex: Male

DRUGS (15)
  1. TOPALGIC (TRAMADOL HYDROCHLORIDE) [Concomitant]
     Active Substance: TRAMADOL
     Dosage: 100, IF NEEDED
     Route: 042
  2. INEXIUM (ESOMEPRAZOLE MAGNESIUM) [Concomitant]
     Active Substance: ESOMEPRAZOLE MAGNESIUM
     Dosage: 20 MG IN THE EVENING
  3. PLATELETS [Concomitant]
     Active Substance: HUMAN PLATELET, ALLOGENIC
     Dosage: FOR 24 HOURS
     Dates: start: 20170213, end: 20170214
  4. POLARAMINE [Concomitant]
     Active Substance: DEXCHLORPHENIRAMINE MALEATE
     Dosage: 1 DF(AMPOULE), ONCE
     Dates: start: 20170213
  5. METRONIDAZOLE. [Suspect]
     Active Substance: METRONIDAZOLE
     Indication: INFECTION PROPHYLAXIS
     Dosage: 500 MG, TID (AT 3, 11, 19)
     Route: 042
     Dates: start: 20170211
  6. BLOOD CELLS, RED [Concomitant]
     Active Substance: HUMAN BLOOD CELLS
     Dosage: UNK
     Dates: start: 20170212, end: 20170213
  7. SMECTA [Concomitant]
     Active Substance: MONTMORILLONITE
     Dosage: 1 BAG IN THE MORNING AT NOON AND IN TH EVENING
  8. TIORFAN [Concomitant]
     Active Substance: RACECADOTRIL
     Dosage: 1 CAPSULE(100MG) IN THE MORNING AT NOON AND IN THE EVENING
     Route: 048
  9. DEFITELIO [Suspect]
     Active Substance: DEFIBROTIDE SODIUM
     Indication: THROMBOSIS
     Dosage: 600 MG 4/DAY (AT 2, 8, 14, 20)
     Route: 042
     Dates: start: 20170213
  10. FORTUM [Suspect]
     Active Substance: CEFTAZIDIME
     Indication: INFECTION PROPHYLAXIS
     Dosage: 1 G 3/DAY AT 3, 11, 19 HOUR
     Route: 042
     Dates: start: 20170213, end: 20170228
  11. CRESEMBA [Suspect]
     Active Substance: ISAVUCONAZONIUM SULFATE
     Indication: INFECTION PROPHYLAXIS
     Dosage: 100 MG 2/DAY (2 CAPSULES AT NOON)
     Route: 002
     Dates: start: 20170206
  12. MAGNESIUM PIDOLATE [Concomitant]
     Active Substance: MAGNESIUM PIDOLATE
     Dosage: BY 24 HOURS
     Route: 042
     Dates: start: 20170130, end: 20170216
  13. IMIPENEM AND CILASTATIN [Suspect]
     Active Substance: CILASTATIN SODIUM\IMIPENEM
     Indication: INFECTION PROPHYLAXIS
     Dosage: 3X/24H AT 3, 11, 19 HOUR
     Route: 042
     Dates: start: 20170211, end: 20170218
  14. THYMOGLOBULIN [Suspect]
     Active Substance: LAPINE T-LYMPHOCYTE IMMUNE GLOBULIN
     Indication: BONE MARROW TRANSPLANT
     Dosage: 230 MG AT DAY -4 AND DAY -3
     Route: 042
     Dates: start: 20160213, end: 20160214
  15. ALPRAZOLAM. [Concomitant]
     Active Substance: ALPRAZOLAM
     Dosage: 0.25 (1 TABLET) IF NEEDED
     Route: 048

REACTIONS (4)
  - Anaphylactic shock [Recovered/Resolved]
  - Tachycardia [Recovered/Resolved]
  - Hyperthermia [Recovered/Resolved]
  - Tachypnoea [Recovered/Resolved]

NARRATIVE: CASE EVENT DATE: 20170213
